FAERS Safety Report 8378104-0 (Version None)
Quarter: 2012Q2

REPORT INFORMATION
  Report Type: 
  Country: None (occurrence: None)
  Receive Date: 20120522
  Receipt Date: 20120510
  Transmission Date: 20120825
  Serious: Yes (Hospitalization)
  Sender: FDA-Public Use
  Company Number: US-ACTELION-A-NJ2011-54256

PATIENT

DRUGS (6)
  1. CALCIUM CHANNEL BLOCKERS [Concomitant]
  2. TRACLEER [Suspect]
     Indication: PULMONARY ARTERIAL HYPERTENSION
     Dosage: UNK
     Route: 048
     Dates: start: 20090115, end: 20110603
  3. SILDENAFIL [Concomitant]
  4. EPOPROSTENOL SODIUM [Suspect]
     Indication: PULMONARY ARTERIAL HYPERTENSION
     Dosage: 20 NG/KG, PER MIN
     Route: 041
     Dates: start: 20101028
  5. OXYGEN [Concomitant]
  6. TRACLEER [Suspect]
     Dosage: UNK
     Route: 048

REACTIONS (3)
  - CATHETER SITE PRURITUS [None]
  - DEVICE RELATED INFECTION [None]
  - CATHETER SITE PAIN [None]
